FAERS Safety Report 21059201 (Version 2)
Quarter: 2022Q3

REPORT INFORMATION
  Report Type: Spontaneous
  Country: US (occurrence: US)
  Receive Date: 20220708
  Receipt Date: 20220708
  Transmission Date: 20221027
  Serious: No
  Sender: FDA-Public Use
  Company Number: US-PFIZER INC-PV202200015461

PATIENT
  Sex: Female

DRUGS (1)
  1. PREMPRO [Suspect]
     Active Substance: ESTROGENS, CONJUGATED\MEDROXYPROGESTERONE ACETATE
     Indication: Multiple sclerosis
     Dosage: UNK

REACTIONS (4)
  - Night sweats [Unknown]
  - Hot flush [Unknown]
  - Off label use [Unknown]
  - Drug effective for unapproved indication [Unknown]
